FAERS Safety Report 25165456 (Version 1)
Quarter: 2025Q2

REPORT INFORMATION
  Report Type: Spontaneous
  Country: CN (occurrence: CN)
  Receive Date: 20250407
  Receipt Date: 20250407
  Transmission Date: 20250716
  Serious: Yes (Other)
  Sender: ALEXION PHARMACEUTICALS
  Company Number: CN-ASTRAZENECA-202503CHN027804CN

PATIENT
  Age: 66 Year
  Weight: 60 kg

DRUGS (6)
  1. IMFINZI [Suspect]
     Active Substance: DURVALUMAB
     Indication: Bile duct cancer
     Dosage: 1500 MILLIGRAM, QD
  2. GEMCITABINE HYDROCHLORIDE [Suspect]
     Active Substance: GEMCITABINE HYDROCHLORIDE
     Indication: Bile duct cancer
     Dosage: 1.600 GRAM, QD
  3. CISPLATIN [Suspect]
     Active Substance: CISPLATIN
     Indication: Bile duct cancer
     Dosage: 40 MILLIGRAM, QD
  4. Sodium chloride physiological [Concomitant]
     Dosage: 100 MILLILITER, QD
  5. Sodium chloride physiological [Concomitant]
     Dosage: 250 MILLILITER, QD
  6. Sodium chloride physiological [Concomitant]
     Dosage: 100 MILLILITER, QD

REACTIONS (2)
  - White blood cell count decreased [Recovering/Resolving]
  - Neutrophil count decreased [Recovering/Resolving]
